FAERS Safety Report 9452268 (Version 1)
Quarter: 2013Q3

REPORT INFORMATION
  Report Type: Spontaneous
  Country: US (occurrence: US)
  Receive Date: 20130812
  Receipt Date: 20130812
  Transmission Date: 20140515
  Serious: Yes (Death)
  Sender: FDA-Public Use
  Company Number: US-JNJFOC-20130803469

PATIENT
  Age: 64 Year
  Sex: Male
  Weight: 61.24 kg

DRUGS (3)
  1. TYLENOL EXTRA STRENGTH [Suspect]
     Route: 048
  2. TYLENOL EXTRA STRENGTH [Suspect]
     Indication: PLASMA CELL MYELOMA
     Dosage: 1 CAPLET
     Route: 048
     Dates: start: 19820126, end: 19860106
  3. (NOS) CHEMOTHERAPY [Concomitant]
     Route: 065

REACTIONS (1)
  - Plasma cell myeloma [Fatal]
